FAERS Safety Report 19093344 (Version 3)
Quarter: 2021Q2

REPORT INFORMATION
  Report Type: Spontaneous
  Country: DE (occurrence: DE)
  Receive Date: 20210405
  Receipt Date: 20210625
  Transmission Date: 20210717
  Serious: Yes (Life-Threatening, Hospitalization, Other)
  Sender: FDA-Public Use
  Company Number: DE-B.I. PHARMACEUTICALS,INC./RIDGEFIELD-2021-BI-093828

PATIENT
  Age: 61 Year
  Sex: Male
  Weight: 130 kg

DRUGS (1)
  1. PRADAXA [Suspect]
     Active Substance: DABIGATRAN ETEXILATE MESYLATE
     Indication: ANTITHROMBIN III
     Dates: start: 2018

REACTIONS (6)
  - Drug ineffective [Unknown]
  - Embolism arterial [Unknown]
  - Thrombophlebitis [Unknown]
  - Off label use [Unknown]
  - Deep vein thrombosis [Unknown]
  - Intentional overdose [Unknown]

NARRATIVE: CASE EVENT DATE: 2021
